FAERS Safety Report 12718884 (Version 1)
Quarter: 2016Q3

REPORT INFORMATION
  Report Type: Spontaneous
  Country: US (occurrence: US)
  Receive Date: 20160906
  Receipt Date: 20160906
  Transmission Date: 20161109
  Serious: Yes (Other)
  Sender: FDA-Public Use
  Company Number: US-GLAXOSMITHKLINE-US2016GSK127846

PATIENT
  Sex: Male

DRUGS (1)
  1. TANZEUM [Suspect]
     Active Substance: ALBIGLUTIDE
     Indication: TYPE 2 DIABETES MELLITUS
     Dosage: 50 MG, WE
     Route: 042
     Dates: start: 2015

REACTIONS (6)
  - Constipation [Recovered/Resolved]
  - Feeling abnormal [Unknown]
  - Abdominal pain upper [Unknown]
  - Constipation [Recovered/Resolved]
  - Blood glucose decreased [Unknown]
  - Weight decreased [Unknown]

NARRATIVE: CASE EVENT DATE: 2015
